FAERS Safety Report 21174769 (Version 1)
Quarter: 2022Q3

REPORT INFORMATION
  Report Type: Report from Study
  Country: US (occurrence: US)
  Receive Date: 20220805
  Receipt Date: 20220805
  Transmission Date: 20221027
  Serious: Yes (Hospitalization)
  Sender: FDA-Public Use
  Company Number: US-JNJFOC-20220758957

PATIENT
  Age: 81 Year
  Sex: Male
  Weight: 75 kg

DRUGS (20)
  1. ABIRATERONE ACETATE [Suspect]
     Active Substance: ABIRATERONE ACETATE
     Indication: Prostate cancer metastatic
     Route: 048
     Dates: start: 20220125, end: 20220505
  2. ABIRATERONE ACETATE [Suspect]
     Active Substance: ABIRATERONE ACETATE
     Route: 048
     Dates: end: 20220511
  3. ABEMACICLIB [Suspect]
     Active Substance: ABEMACICLIB
     Indication: Prostate cancer metastatic
     Route: 048
     Dates: start: 20220125
  4. PREDNISONE [Suspect]
     Active Substance: PREDNISONE
     Indication: Prostate cancer metastatic
     Route: 048
     Dates: start: 20220125
  5. LEUCOVORIN CALCIUM [Concomitant]
     Active Substance: LEUCOVORIN CALCIUM
     Indication: Prophylaxis
     Dates: start: 20220506
  6. ALPRAZOLAM [Concomitant]
     Active Substance: ALPRAZOLAM
  7. CARVEDILOL [Concomitant]
     Active Substance: CARVEDILOL
  8. CITALOPRAM [Concomitant]
     Active Substance: CITALOPRAM HYDROBROMIDE
  9. LEUPROLIDE ACETATE [Concomitant]
     Active Substance: LEUPROLIDE ACETATE
  10. OMEPRAZOLE [Concomitant]
     Active Substance: OMEPRAZOLE
  11. PREDNISONE [Concomitant]
     Active Substance: PREDNISONE
  12. VALSARTAN [Concomitant]
     Active Substance: VALSARTAN
  13. TAMSULOSIN [Concomitant]
     Active Substance: TAMSULOSIN
  14. TRAZODONE [Concomitant]
     Active Substance: TRAZODONE HYDROCHLORIDE
  15. LORAZEPAM [Concomitant]
     Active Substance: LORAZEPAM
  16. METAMIZOLE [Concomitant]
     Active Substance: METAMIZOLE
  17. POLYETHYLENE GLYCOLS [Concomitant]
     Active Substance: POLYETHYLENE GLYCOLS
  18. MORPHINE [Concomitant]
     Active Substance: MORPHINE
  19. TAPENTADOL [Concomitant]
     Active Substance: TAPENTADOL
  20. EMETAL [METOCLOPRAMIDE] [Concomitant]

REACTIONS (1)
  - Respiratory failure [Recovering/Resolving]

NARRATIVE: CASE EVENT DATE: 20220505
